FAERS Safety Report 9936862 (Version 1)
Quarter: 2014Q1

REPORT INFORMATION
  Report Type: Spontaneous
  Country: US (occurrence: None)
  Receive Date: 20140114
  Receipt Date: 20140114
  Transmission Date: 20141002
  Serious: Yes (Other)
  Sender: FDA-Public Use
  Company Number: E2020-12636-SPO-US

PATIENT
  Age: 88 Year
  Sex: Female
  Weight: 58.96 kg

DRUGS (3)
  1. ARICEPT (DONEPEZIL HYDROCHLORIDE) [Suspect]
     Indication: DEMENTIA
     Route: 048
     Dates: start: 201208, end: 2012
  2. EVISTA (RALOXIFENE) [Concomitant]
  3. UNSPECIFIED MEDICATION FOR HIGH BLOOD PRESSURE (ANTIHYPERTENSIVES) [Concomitant]

REACTIONS (4)
  - Cerebrovascular accident [None]
  - Abnormal behaviour [None]
  - Syncope [None]
  - Wrong technique in drug usage process [None]
